FAERS Safety Report 7367950-8 (Version None)
Quarter: 2011Q1

REPORT INFORMATION
  Report Type: 
  Country: None (occurrence: None)
  Receive Date: 20110322
  Receipt Date: 20110309
  Transmission Date: 20110831
  Serious: Yes (Other)
  Sender: FDA-Public Use
  Company Number: PHHY2011GB19239

PATIENT
  Age: 38 Year
  Sex: Female

DRUGS (2)
  1. MIRTAZAPINE [Concomitant]
  2. AZITHROMYCIN [Suspect]
     Indication: TOOTH DISORDER
     Dates: start: 20100601

REACTIONS (6)
  - DECREASED APPETITE [None]
  - INSOMNIA [None]
  - WEIGHT DECREASED [None]
  - GASTRITIS [None]
  - CRYING [None]
  - DEPRESSION [None]
